FAERS Safety Report 11316358 (Version 1)
Quarter: 2015Q3

REPORT INFORMATION
  Report Type: Spontaneous
  Country: CA (occurrence: CA)
  Receive Date: 20150728
  Receipt Date: 20150728
  Transmission Date: 20151125
  Serious: Yes (Disabling)
  Sender: FDA-Public Use
  Company Number: CA-TEVA-581008ACC

PATIENT
  Age: 34 Year
  Sex: Female
  Weight: 64 kg

DRUGS (5)
  1. CICLOPIROX OLAMINE. [Concomitant]
     Active Substance: CICLOPIROX OLAMINE
     Route: 065
  2. NASONEX [Concomitant]
     Active Substance: MOMETASONE FUROATE
     Route: 065
  3. TRIQUILAR 28 [Concomitant]
     Route: 065
  4. SERTRALINE [Suspect]
     Active Substance: SERTRALINE HYDROCHLORIDE
     Indication: GENERALISED ANXIETY DISORDER
     Dosage: 25 MILLIGRAM DAILY;
     Route: 048
  5. BETADERM CRM 0.1% [Concomitant]
     Route: 065

REACTIONS (3)
  - Anhedonia [Recovered/Resolved]
  - Drug ineffective [Recovered/Resolved]
  - Apathy [Recovered/Resolved]
